FAERS Safety Report 8876821 (Version 1)
Quarter: 2012Q4

REPORT INFORMATION
  Report Type: Spontaneous
  Country: US (occurrence: None)
  Receive Date: 20121024
  Receipt Date: 20121024
  Transmission Date: 20130627
  Serious: Yes (Other)
  Sender: FDA-Public Use
  Company Number: JPI-P-025801

PATIENT
  Age: 43 Year
  Sex: Female

DRUGS (1)
  1. XYREM [Suspect]
     Indication: NARCOLEPSY
     Dates: start: 20100305

REACTIONS (5)
  - Cholecystectomy [None]
  - Somnolence [None]
  - Pelvic pain [None]
  - Nausea [None]
  - Product taste abnormal [None]
